FAERS Safety Report 15937462 (Version 1)
Quarter: 2019Q1

REPORT INFORMATION
  Report Type: Spontaneous
  Country: KZ (occurrence: KZ)
  Receive Date: 20190208
  Receipt Date: 20190208
  Transmission Date: 20190417
  Serious: Yes (Other)
  Sender: FDA-Public Use
  Company Number: KZ-009507513-1901KAZ011882

PATIENT
  Age: 34 Year
  Sex: Male
  Weight: 110.3 kg

DRUGS (12)
  1. AMOXICILLIN (+) CLAVULANATE POTASSIUM [Suspect]
     Active Substance: AMOXICILLIN\CLAVULANATE POTASSIUM
     Indication: DRUG RESISTANCE
     Dosage: 2000MG, QD
     Dates: start: 20180919, end: 20181114
  2. LINEZOLID. [Suspect]
     Active Substance: LINEZOLID
     Indication: DRUG RESISTANCE
     Dosage: 600 MILLIGRAM, QD
     Dates: start: 20180919, end: 20181229
  3. BEDAQUILINE [Suspect]
     Active Substance: BEDAQUILINE
     Indication: TUBERCULOSIS
     Dosage: UNK
     Dates: start: 20190110, end: 201901
  4. IMIPENEM AND CILASTATIN [Suspect]
     Active Substance: CILASTATIN SODIUM\IMIPENEM
     Indication: DRUG RESISTANCE
     Dosage: 2000 MG, QD
     Dates: start: 20180919, end: 20181114
  5. DELAMANID [Suspect]
     Active Substance: DELAMANID
     Indication: DRUG RESISTANCE
     Dosage: 200 MILLIGRAM, QD
     Route: 048
     Dates: start: 20180919, end: 20181225
  6. DELAMANID [Suspect]
     Active Substance: DELAMANID
     Indication: TUBERCULOSIS
  7. IMIPENEM AND CILASTATIN [Suspect]
     Active Substance: CILASTATIN SODIUM\IMIPENEM
     Indication: TUBERCULOSIS
  8. AMOXICILLIN (+) CLAVULANATE POTASSIUM [Suspect]
     Active Substance: AMOXICILLIN\CLAVULANATE POTASSIUM
     Indication: TUBERCULOSIS
  9. BEDAQUILINE [Suspect]
     Active Substance: BEDAQUILINE
     Indication: DRUG RESISTANCE
     Dosage: 400(200)MG, QD
     Dates: start: 20180919, end: 20181225
  10. CLOFAZIMINE [Suspect]
     Active Substance: CLOFAZIMINE
     Indication: DRUG RESISTANCE
     Dosage: 200(100) MG, QD
     Dates: start: 20180919, end: 20181130
  11. CLOFAZIMINE [Suspect]
     Active Substance: CLOFAZIMINE
     Indication: TUBERCULOSIS
  12. LINEZOLID. [Suspect]
     Active Substance: LINEZOLID
     Indication: TUBERCULOSIS
     Dosage: UNK
     Dates: start: 20190110, end: 201901

REACTIONS (10)
  - Hypotension [Unknown]
  - Drug intolerance [Unknown]
  - Haemoglobin decreased [Unknown]
  - Asthenia [Unknown]
  - Vomiting [Unknown]
  - Pleurisy [Unknown]
  - Blood potassium decreased [Recovered/Resolved]
  - Electrocardiogram QT prolonged [Unknown]
  - Nausea [Unknown]
  - Dyspnoea [Unknown]

NARRATIVE: CASE EVENT DATE: 20181019
